FAERS Safety Report 8589364-5 (Version None)
Quarter: 2012Q3

REPORT INFORMATION
  Report Type: 
  Country: None (occurrence: None)
  Receive Date: 20120801
  Receipt Date: 20120718
  Transmission Date: 20120928
  Serious: Yes (Life-Threatening, Hospitalization)
  Sender: FDA-Public Use
  Company Number: 2012MA009114

PATIENT
  Age: 18 Year
  Sex: Male

DRUGS (2)
  1. LEVETIRACETAM [Suspect]
     Dosage: 250 MG;Q12H
  2. VALPROATE SODIUM [Concomitant]

REACTIONS (6)
  - CONVULSION [None]
  - DRUG INEFFECTIVE [None]
  - APPARENT LIFE THREATENING EVENT [None]
  - POSTICTAL STATE [None]
  - HEADACHE [None]
  - PRODUCT SUBSTITUTION ISSUE [None]
